FAERS Safety Report 24767735 (Version 1)
Quarter: 2024Q4

REPORT INFORMATION
  Report Type: Spontaneous
  Country: US (occurrence: None)
  Receive Date: 20241222
  Receipt Date: 20241222
  Transmission Date: 20250114
  Serious: Yes (Disabling)
  Sender: Public
  Company Number: None

PATIENT
  Age: 33 Year
  Sex: Male

DRUGS (1)
  1. VENLAFAXINE [Suspect]
     Active Substance: VENLAFAXINE HYDROCHLORIDE

REACTIONS (13)
  - Genital hypoaesthesia [None]
  - Erectile dysfunction [None]
  - Loss of libido [None]
  - Urinary tract obstruction [None]
  - Cognitive disorder [None]
  - Memory impairment [None]
  - Disturbance in attention [None]
  - Aphasia [None]
  - Acalculia [None]
  - Flat affect [None]
  - Emotional distress [None]
  - Product communication issue [None]
  - Suicidal ideation [None]

NARRATIVE: CASE EVENT DATE: 20220104
